FAERS Safety Report 11831120 (Version 3)
Quarter: 2015Q4

REPORT INFORMATION
  Report Type: Report from Study
  Country: CA (occurrence: CA)
  Receive Date: 20151214
  Receipt Date: 20151218
  Transmission Date: 20160305
  Serious: Yes (Other)
  Sender: FDA-Public Use
  Company Number: CA-ROCHE-1527982

PATIENT
  Sex: Female
  Weight: 58 kg

DRUGS (6)
  1. KADCYLA [Suspect]
     Active Substance: ADO-TRASTUZUMAB EMTANSINE
     Indication: HER-2 POSITIVE BREAST CANCER
     Route: 042
     Dates: start: 20150915
  2. PERJETA [Suspect]
     Active Substance: PERTUZUMAB
     Route: 042
     Dates: start: 20150217, end: 20150825
  3. DECADRON (CANADA) [Concomitant]
     Route: 065
  4. PERJETA [Suspect]
     Active Substance: PERTUZUMAB
     Indication: HER-2 POSITIVE BREAST CANCER
     Route: 042
     Dates: start: 20150127, end: 20150825
  5. NEUPOGEN [Concomitant]
     Active Substance: FILGRASTIM
     Route: 065
  6. NEULASTA [Concomitant]
     Active Substance: PEGFILGRASTIM
     Route: 065

REACTIONS (8)
  - White blood cell count decreased [Recovered/Resolved]
  - Echocardiogram abnormal [Unknown]
  - Lymphocyte count decreased [Unknown]
  - Hypotension [Unknown]
  - Red cell distribution width increased [Unknown]
  - Infusion related reaction [Unknown]
  - Heart rate decreased [Unknown]
  - Platelet count decreased [Unknown]
